FAERS Safety Report 13102441 (Version 1)
Quarter: 2017Q1

REPORT INFORMATION
  Report Type: Spontaneous
  Country: US (occurrence: US)
  Receive Date: 20170110
  Receipt Date: 20170110
  Transmission Date: 20170428
  Serious: No
  Sender: FDA-Public Use
  Company Number: US-TARO-2016TAR00176

PATIENT
  Age: 75 Year
  Sex: Male

DRUGS (1)
  1. DESOXIMETASONE CREAM USP 0.25% [Suspect]
     Active Substance: DESOXIMETASONE
     Indication: DRY SKIN
     Dosage: UNK, 2X/DAY
     Route: 061

REACTIONS (4)
  - Blood glucose increased [Unknown]
  - Drug ineffective [Unknown]
  - Glycosylated haemoglobin increased [Unknown]
  - Blood cholesterol increased [Unknown]
